FAERS Safety Report 10240363 (Version 4)
Quarter: 2019Q2

REPORT INFORMATION
  Report Type: Spontaneous
  Country: US (occurrence: US)
  Receive Date: 20140617
  Receipt Date: 20190527
  Transmission Date: 20190711
  Serious: Yes (Hospitalization, Other)
  Sender: FDA-Public Use
  Company Number: US-ROCHE-1418169

PATIENT
  Age: 58 Year
  Sex: Female
  Weight: 88.43 kg

DRUGS (15)
  1. BONIVA [Suspect]
     Active Substance: IBANDRONATE SODIUM
     Indication: OSTEOPOROSIS
     Dosage: ON 25/DEC/2007 AND  25/MAY/2012
     Route: 048
     Dates: start: 20060421, end: 201205
  2. ADVAIR HFA [Concomitant]
     Active Substance: FLUTICASONE PROPIONATE\SALMETEROL XINAFOATE
  3. ACTONEL [Suspect]
     Active Substance: RISEDRONATE SODIUM
     Indication: OSTEOPOROSIS
     Route: 048
     Dates: start: 20021205, end: 200604
  4. SINGULAIR [Concomitant]
     Active Substance: MONTELUKAST SODIUM
  5. ALBUTEROL [SALBUTAMOL] [Concomitant]
     Active Substance: ALBUTEROL
  6. TRIMOXAZOL [Concomitant]
     Active Substance: SULFAMETHOXAZOLE\TRIMETHOPRIM
  7. IBUPROFEN. [Concomitant]
     Active Substance: IBUPROFEN
  8. DESIPRAMINE [Concomitant]
     Active Substance: DESIPRAMINE
  9. OPTIVAR [Concomitant]
     Active Substance: AZELASTINE HYDROCHLORIDE
  10. CLINDAMYCIN. [Concomitant]
     Active Substance: CLINDAMYCIN
  11. CLENIA [Concomitant]
     Active Substance: SULFACETAMIDE SODIUM\SULFUR
  12. ZYRTEC-D [Concomitant]
     Active Substance: CETIRIZINE HYDROCHLORIDE\PSEUDOEPHEDRINE HYDROCHLORIDE
  13. METROGEL [Concomitant]
     Active Substance: METRONIDAZOLE
  14. ESOMEPRAZOLE. [Concomitant]
     Active Substance: ESOMEPRAZOLE MAGNESIUM
  15. ALLEGRA [Concomitant]
     Active Substance: FEXOFENADINE HYDROCHLORIDE

REACTIONS (5)
  - Stress fracture [Unknown]
  - Anxiety [Unknown]
  - Fall [Unknown]
  - Femur fracture [Unknown]
  - Low turnover osteopathy [Unknown]

NARRATIVE: CASE EVENT DATE: 2011
